FAERS Safety Report 4955784-0 (Version None)
Quarter: 2006Q1

REPORT INFORMATION
  Report Type: 
  Country: None (occurrence: None)
  Receive Date: 20060127
  Receipt Date: 20050209
  Transmission Date: 20060701
  Serious: Yes (Hospitalization, Other)
  Sender: FDA-Public Use
  Company Number: 05-02-0185

PATIENT
  Age: 25 Year
  Sex: Male

DRUGS (2)
  1. CLOZAPINE [Suspect]
     Indication: PSYCHOTIC DISORDER
     Dosage: 300 MG QD, ORAL
     Route: 048
     Dates: start: 20030501, end: 20050201
  2. CLOZAPINE [Suspect]
     Indication: SCHIZOPHRENIFORM DISORDER
     Dosage: 300 MG QD, ORAL
     Route: 048
     Dates: start: 20030501, end: 20050201

REACTIONS (2)
  - DIABETES MELLITUS [None]
  - PANCREATITIS [None]
